FAERS Safety Report 5699843-6 (Version None)
Quarter: 2008Q2

REPORT INFORMATION
  Report Type: 
  Country: None (occurrence: None)
  Receive Date: 20080410
  Receipt Date: 20080312
  Transmission Date: 20081010
  Serious: No
  Sender: FDA-Public Use
  Company Number: US-BOEHRINGER INGELHEIM GMBH, GERMANY-2008-BP-01683BP

PATIENT
  Sex: Female

DRUGS (6)
  1. CATAPRES-TTS-1 [Suspect]
     Indication: HYPERTENSION
     Route: 061
     Dates: start: 20030101
  2. TOPROL-XL [Concomitant]
  3. XANAX [Concomitant]
  4. SYNTHROID [Concomitant]
  5. CITALOPRAM HYDROBROMIDE [Concomitant]
  6. LASIX [Concomitant]

REACTIONS (1)
  - APPLICATION SITE BLEEDING [None]
